FAERS Safety Report 9269199 (Version 4)
Quarter: 2013Q4

REPORT INFORMATION
  Report Type: Spontaneous
  Country: US (occurrence: US)
  Receive Date: 20130503
  Receipt Date: 20131105
  Transmission Date: 20140711
  Serious: Yes (Other)
  Sender: FDA-Public Use
  Company Number: US-PFIZER INC-2013135581

PATIENT
  Sex: Female

DRUGS (3)
  1. LEVOXYL [Suspect]
     Dosage: 88 UG, UNK
     Dates: end: 2013
  2. LEVOXYL [Suspect]
     Dosage: 100 UG, UNK
     Dates: start: 2013
  3. LEVOXYL [Suspect]
     Dosage: UNK

REACTIONS (7)
  - Mental impairment [Unknown]
  - Menorrhagia [Unknown]
  - Malaise [Unknown]
  - Weight increased [Unknown]
  - Feeling abnormal [Unknown]
  - Drug ineffective [Unknown]
  - Fatigue [Unknown]
